FAERS Safety Report 7363685-6 (Version None)
Quarter: 2011Q1

REPORT INFORMATION
  Report Type: 
  Country: None (occurrence: None)
  Receive Date: 20110321
  Receipt Date: 20110208
  Transmission Date: 20110831
  Serious: No
  Sender: FDA-Public Use
  Company Number: A0886140A

PATIENT
  Age: 55 Year
  Sex: Female

DRUGS (5)
  1. METOPROLOL [Concomitant]
  2. SYNTHROID [Concomitant]
  3. FOSAMAX [Concomitant]
  4. ROMIPLOSTIM [Concomitant]
  5. PROMACTA [Suspect]
     Indication: IDIOPATHIC THROMBOCYTOPENIC PURPURA
     Dosage: 1TAB SINGLE DOSE
     Route: 048
     Dates: start: 20100922, end: 20100922

REACTIONS (5)
  - SWOLLEN TONGUE [None]
  - SWELLING [None]
  - FORMICATION [None]
  - FLUSHING [None]
  - PRURITUS [None]
